FAERS Safety Report 19368420 (Version 1)
Quarter: 2021Q2

REPORT INFORMATION
  Report Type: Spontaneous
  Country: US (occurrence: US)
  Receive Date: 20210602
  Receipt Date: 20210602
  Transmission Date: 20210717
  Serious: No
  Sender: FDA-Public Use
  Company Number: US-ROCHE-2650628

PATIENT
  Age: 50 Year
  Sex: Female
  Weight: 129.7 kg

DRUGS (3)
  1. OCREVUS [Suspect]
     Active Substance: OCRELIZUMAB
     Indication: MULTIPLE SCLEROSIS
     Dosage: 600 MG IV INFUSION ONCE EVERY 5 MONTHS
     Route: 041
  2. OCREVUS [Suspect]
     Active Substance: OCRELIZUMAB
     Dosage: 600 MG IV INFUSION ONCE EVERY 6 MONTHS
     Route: 041
  3. OCREVUS [Suspect]
     Active Substance: OCRELIZUMAB
     Dosage: TWO 300 MG IV INFUSIONS SEPARATED BY 2 WEEKS
     Route: 041

REACTIONS (2)
  - Drug ineffective [Unknown]
  - No adverse event [Unknown]
